FAERS Safety Report 4486399-9 (Version None)
Quarter: 2004Q4

REPORT INFORMATION
  Report Type: 
  Country: None (occurrence: None)
  Receive Date: 20041022
  Receipt Date: 20041011
  Transmission Date: 20050328
  Serious: Yes (Hospitalization, Other)
  Sender: FDA-Public Use
  Company Number: 209612

PATIENT
  Sex: Male

DRUGS (1)
  1. RITUXAN [Suspect]
     Indication: NON-HODGKIN'S LYMPHOMA
     Dosage: 1/MONTH

REACTIONS (3)
  - BLOOD PRESSURE DECREASED [None]
  - SEPSIS [None]
  - WHITE BLOOD CELL COUNT DECREASED [None]
